FAERS Safety Report 18183155 (Version 3)
Quarter: 2020Q3

REPORT INFORMATION
  Report Type: Spontaneous
  Country: US (occurrence: US)
  Receive Date: 20200821
  Receipt Date: 20200911
  Transmission Date: 20201103
  Serious: Yes (Hospitalization)
  Sender: FDA-Public Use
  Company Number: US-SEATTLE GENETICS-2020SGN03563

PATIENT
  Age: 37 Year
  Sex: Female

DRUGS (2)
  1. TUKYSA [Suspect]
     Active Substance: TUCATINIB
     Indication: BREAST CANCER
     Dosage: 150 MG, UNK
     Route: 048
  2. CAPECITABINE. [Suspect]
     Active Substance: CAPECITABINE
     Indication: BREAST CANCER

REACTIONS (11)
  - Unevaluable event [Unknown]
  - Unevaluable event [Unknown]
  - Abdominal distension [Unknown]
  - Lethargy [Unknown]
  - Somnolence [Unknown]
  - Hemiparaesthesia [Unknown]
  - Dysarthria [Unknown]
  - Balance disorder [Unknown]
  - Flatulence [Recovered/Resolved]
  - Hemianaesthesia [Unknown]
  - Diarrhoea [Unknown]

NARRATIVE: CASE EVENT DATE: 20200807
